FAERS Safety Report 4869027-X (Version None)
Quarter: 2005Q4

REPORT INFORMATION
  Report Type: 
  Country: None (occurrence: None)
  Receive Date: 20051223
  Receipt Date: 20051213
  Transmission Date: 20060501
  Serious: Yes (Life-Threatening, Hospitalization, Other)
  Sender: FDA-Public Use
  Company Number: 2005RR-01336

PATIENT
  Age: 78 Year
  Sex: Male
  Weight: 70 kg

DRUGS (10)
  1. ASPIRIN [Suspect]
     Dosage: 75 MG, ORAL
     Route: 048
  2. CLOPIDOGREL(CLOPIDOGREL) [Suspect]
     Indication: TROPONIN INCREASED
     Dosage: 75 MG, ORAL
     Route: 048
     Dates: start: 20051123, end: 20051125
  3. ENALAPRIL MALEATE [Suspect]
     Indication: TROPONIN INCREASED
     Dosage: 80 MG, BID, SUBCUTANEOUS
     Route: 058
     Dates: start: 20051124, end: 20051125
  4. SIMVASTATIN FILM COATED TABLET 20MG (SIMVASTATIN) TABLET, 20 MG [Concomitant]
  5. DILTIAZEM [Concomitant]
  6. LITHIUM [Concomitant]
  7. PROMAZINE HCL [Concomitant]
  8. OLANZAPINE [Concomitant]
  9. ZOLADEX [Concomitant]
  10. VENLAFAXINE HCL [Concomitant]

REACTIONS (3)
  - GASTRIC ULCER [None]
  - GASTROINTESTINAL HAEMORRHAGE [None]
  - METASTATIC NEOPLASM [None]
